FAERS Safety Report 4378376-3 (Version None)
Quarter: 2004Q2

REPORT INFORMATION
  Report Type: 
  Country: None (occurrence: None)
  Receive Date: 20040616
  Receipt Date: 20040604
  Transmission Date: 20050107
  Serious: Yes (Other)
  Sender: FDA-Public Use
  Company Number: PHRM2004FR02026

PATIENT
  Age: 54 Year
  Sex: Female

DRUGS (1)
  1. TEGRETOL [Suspect]
     Indication: REFLEX SYMPATHETIC DYSTROPHY
     Dosage: 200 MG, BID
     Route: 048

REACTIONS (2)
  - ABDOMINAL PAIN [None]
  - RETROPERITONEAL FIBROSIS [None]
